FAERS Safety Report 5835312-8 (Version None)
Quarter: 2008Q3

REPORT INFORMATION
  Report Type: 
  Country: None (occurrence: None)
  Receive Date: 20080806
  Receipt Date: 20080805
  Transmission Date: 20090109
  Serious: Yes (Hospitalization)
  Sender: FDA-Public Use
  Company Number: US-BRISTOL-MYERS SQUIBB COMPANY-14290274

PATIENT
  Sex: Male

DRUGS (3)
  1. CISPLATIN [Suspect]
  2. NEULASTA [Suspect]
     Indication: CHEMOTHERAPY
     Dosage: PREFILLED SYRINGE
  3. DOCETAXEL [Suspect]

REACTIONS (1)
  - DYSPNOEA [None]
